FAERS Safety Report 7025006-8 (Version None)
Quarter: 2010Q4

REPORT INFORMATION
  Report Type: 
  Country: None (occurrence: None)
  Receive Date: 20101001
  Receipt Date: 20100922
  Transmission Date: 20110411
  Serious: Yes (Hospitalization)
  Sender: FDA-Public Use
  Company Number: US-ASTRAZENECA-2010SE44532

PATIENT

DRUGS (1)
  1. NEXIUM IV [Suspect]
     Indication: GASTROINTESTINAL HAEMORRHAGE
     Route: 042

REACTIONS (1)
  - FLUID INTAKE RESTRICTION [None]
